FAERS Safety Report 5375973-3 (Version None)
Quarter: 2007Q2

REPORT INFORMATION
  Report Type: 
  Country: None (occurrence: None)
  Receive Date: 20070627
  Receipt Date: 20070627
  Transmission Date: 20071010
  Serious: Yes (Other)
  Sender: FDA-Public Use
  Company Number: None

PATIENT
  Age: 55 Year
  Sex: Male
  Weight: 72 kg

DRUGS (1)
  1. EBASTEL   20 MG TABLET  ALMIRALL [Suspect]
     Indication: SEASONAL ALLERGY
     Dosage: 20 MG  1X DAILY  PO
     Route: 048
     Dates: start: 20070613, end: 20070614

REACTIONS (1)
  - EPISTAXIS [None]
